FAERS Safety Report 9393652 (Version 1)
Quarter: 2013Q3

REPORT INFORMATION
  Report Type: Spontaneous
  Country: FR (occurrence: FR)
  Receive Date: 20130710
  Receipt Date: 20130710
  Transmission Date: 20140515
  Serious: Yes (Hospitalization)
  Sender: FDA-Public Use
  Company Number: FR-GLAXOSMITHKLINE-B0904988A

PATIENT
  Age: 5 Year
  Sex: Male

DRUGS (15)
  1. ZOPHREN [Suspect]
     Indication: PROPHYLAXIS OF NAUSEA AND VOMITING
     Dosage: 4MG TWICE PER DAY
     Route: 048
     Dates: start: 20110905
  2. METHOTREXATE [Suspect]
     Indication: ACUTE LYMPHOCYTIC LEUKAEMIA
     Dosage: 12MG CYCLIC
     Route: 037
     Dates: start: 20110905
  3. VINCRISTINE [Suspect]
     Indication: ACUTE LYMPHOCYTIC LEUKAEMIA
     Route: 042
     Dates: start: 20110912
  4. CERUBIDINE [Suspect]
     Indication: ACUTE LYMPHOCYTIC LEUKAEMIA
     Route: 042
     Dates: start: 20110912
  5. KIDROLASE [Suspect]
     Indication: ACUTE LYMPHOCYTIC LEUKAEMIA
     Route: 042
     Dates: start: 20110916
  6. ARACYTINE [Suspect]
     Indication: ACUTE LYMPHOCYTIC LEUKAEMIA
     Route: 037
     Dates: start: 20110916
  7. HYDROCORTISONE [Suspect]
     Indication: ACUTE LYMPHOCYTIC LEUKAEMIA
     Route: 037
     Dates: start: 20110916
  8. SOLUPRED [Suspect]
     Route: 048
     Dates: start: 20110905
  9. MOPRAL [Suspect]
     Dosage: 20MG PER DAY
     Route: 048
     Dates: start: 20110905
  10. BACTRIM [Suspect]
     Dosage: 1UNIT THREE TIMES PER WEEK
     Route: 048
     Dates: start: 20110905
  11. SODIUM BICARBONATE [Suspect]
     Dosage: 4UNIT PER DAY
     Route: 002
     Dates: start: 20110905
  12. ROCEPHINE [Concomitant]
     Dates: start: 20110903, end: 20110906
  13. AMIKLIN [Concomitant]
     Dates: start: 20110903, end: 20110908
  14. TAZOCILLINE [Concomitant]
     Dates: start: 20110907, end: 20110915
  15. TARGOCID [Concomitant]
     Dates: start: 20110925, end: 20111003

REACTIONS (5)
  - Febrile bone marrow aplasia [Recovered/Resolved]
  - Oropharyngeal pain [Recovered/Resolved]
  - Asthenia [Recovered/Resolved]
  - Pharyngeal erythema [Recovered/Resolved]
  - Device related infection [Recovered/Resolved]
